FAERS Safety Report 25496020 (Version 3)
Quarter: 2025Q3

REPORT INFORMATION
  Report Type: Report from Study
  Country: EU (occurrence: EU)
  Receive Date: 20250630
  Receipt Date: 20250730
  Transmission Date: 20251021
  Serious: Yes (Death, Hospitalization)
  Sender: ALNYLAM PHARMACEUTICALS
  Company Number: EU-ALNYLAM PHARMACEUTICALS, INC.-ALN-2025-004075

PATIENT

DRUGS (1)
  1. AMVUTTRA [Suspect]
     Active Substance: VUTRISIRAN
     Indication: Amyloidosis
     Dosage: 25 MILLIGRAM, Q3M
     Route: 058
     Dates: start: 20250513, end: 20250513

REACTIONS (1)
  - General physical health deterioration [Fatal]
